FAERS Safety Report 4602421-0 (Version None)
Quarter: 2005Q1

REPORT INFORMATION
  Report Type: 
  Country: None (occurrence: None)
  Receive Date: 20050307
  Receipt Date: 20050224
  Transmission Date: 20050727
  Serious: Yes (Other)
  Sender: FDA-Public Use
  Company Number: USA-2005-0018594

PATIENT
  Age: 56 Year
  Sex: Female

DRUGS (4)
  1. OXYCONTIN [Suspect]
     Indication: PAIN
     Dosage: 60 MG, Q8H
     Dates: start: 20030204, end: 20050127
  2. ZOFRAN [Concomitant]
  3. NORVASC [Concomitant]
  4. GLYBURIDE [Concomitant]

REACTIONS (1)
  - DEAFNESS BILATERAL [None]
